FAERS Safety Report 9224624 (Version 1)
Quarter: 2013Q2

REPORT INFORMATION
  Report Type: Spontaneous
  Country: US (occurrence: None)
  Receive Date: 20130411
  Receipt Date: 20130411
  Transmission Date: 20140414
  Serious: Yes (Death, Hospitalization)
  Sender: FDA-Public Use
  Company Number: None

PATIENT
  Age: 85 Year
  Sex: Male
  Weight: 93.18 kg

DRUGS (11)
  1. COUMADIN [Suspect]
     Indication: CARDIAC PACEMAKER INSERTION
     Dosage: 5MG DAILY PO
     Route: 048
  2. ASA [Suspect]
     Indication: CORONARY ARTERY DISEASE
     Dosage: 81MG DAILY PO
     Route: 048
  3. SIMVASTATIN [Concomitant]
  4. PRILOSEC [Concomitant]
  5. ZOCOR [Concomitant]
  6. CYMBALTA [Concomitant]
  7. MULTAQ [Concomitant]
  8. LASIX [Concomitant]
  9. KCL [Concomitant]
  10. MVI [Concomitant]
  11. NORCO [Concomitant]

REACTIONS (10)
  - Nausea [None]
  - Vomiting [None]
  - Dizziness [None]
  - Hyperhidrosis [None]
  - Blood pressure increased [None]
  - Respiratory rate increased [None]
  - Cerebellar haemorrhage [None]
  - Intracranial pressure increased [None]
  - International normalised ratio increased [None]
  - Hydrocephalus [None]
